FAERS Safety Report 13217393 (Version 1)
Quarter: 2017Q1

REPORT INFORMATION
  Report Type: Other
  Country: US (occurrence: US)
  Receive Date: 20170210
  Receipt Date: 20170210
  Transmission Date: 20170428
  Serious: Yes (Hospitalization)
  Sender: FDA-Public Use
  Company Number: US-ACORDA-ACO_121585_2016

PATIENT
  Sex: Female

DRUGS (2)
  1. TYSABRI [Suspect]
     Active Substance: NATALIZUMAB
     Indication: MULTIPLE SCLEROSIS
     Dosage: 300 MG INFUSED OVER ONE HOUR
     Route: 042
  2. AMPYRA [Suspect]
     Active Substance: DALFAMPRIDINE
     Indication: PRODUCT USED FOR UNKNOWN INDICATION
     Dosage: UNK
     Route: 065

REACTIONS (8)
  - Neurological symptom [Unknown]
  - Disease progression [Unknown]
  - Gait disturbance [Unknown]
  - Incorrect dosage administered [Unknown]
  - Confusional state [Unknown]
  - Fall [Unknown]
  - Condition aggravated [Unknown]
  - Back pain [Unknown]
